FAERS Safety Report 25584095 (Version 1)
Quarter: 2025Q3

REPORT INFORMATION
  Report Type: Other
  Country: CA (occurrence: CA)
  Receive Date: 20250721
  Receipt Date: 20250721
  Transmission Date: 20251021
  Serious: Yes (Other)
  Sender: APOTEX
  Company Number: CA-PGRTD-001141978

PATIENT
  Age: 62 Year
  Sex: Female
  Weight: 61 kg

DRUGS (2)
  1. IMATINIB [Suspect]
     Active Substance: IMATINIB
     Indication: Gastrointestinal stromal tumour
     Route: 048
  2. IMATINIB [Suspect]
     Active Substance: IMATINIB
     Indication: Metastatic neoplasm
     Route: 048

REACTIONS (1)
  - Skin toxicity [Recovering/Resolving]
